FAERS Safety Report 18821650 (Version 2)
Quarter: 2021Q1

REPORT INFORMATION
  Report Type: Spontaneous
  Country: GB (occurrence: GB)
  Receive Date: 20210201
  Receipt Date: 20210315
  Transmission Date: 20210419
  Serious: Yes (Other)
  Sender: FDA-Public Use
  Company Number: GB-PFIZER INC-2021053211

PATIENT
  Sex: Female

DRUGS (1)
  1. CHAMPIX [Suspect]
     Active Substance: VARENICLINE TARTRATE
     Dosage: 0.5 MG
     Route: 048
     Dates: start: 20210106, end: 20210108

REACTIONS (1)
  - Mouth swelling [Recovering/Resolving]

NARRATIVE: CASE EVENT DATE: 20210106
